FAERS Safety Report 7134363-3 (Version None)
Quarter: 2010Q4

REPORT INFORMATION
  Report Type: 
  Country: None (occurrence: None)
  Receive Date: 20101203
  Receipt Date: 20101124
  Transmission Date: 20110411
  Serious: Yes (Hospitalization)
  Sender: FDA-Public Use
  Company Number: CA-JNJFOC-20101200172

PATIENT
  Sex: Female

DRUGS (9)
  1. REMICADE [Suspect]
     Indication: COLITIS ULCERATIVE
     Route: 042
  2. REMICADE [Suspect]
     Route: 042
  3. GRAVOL TAB [Concomitant]
  4. IRON [Concomitant]
  5. TRAMADOL HCL [Concomitant]
  6. PREVACID [Concomitant]
  7. ASPIRIN [Concomitant]
  8. DOCUSATE SODIUM [Concomitant]
  9. RANITIDINE [Concomitant]

REACTIONS (3)
  - BREAST INFECTION [None]
  - BREAST OPERATION [None]
  - FOREIGN BODY [None]
